FAERS Safety Report 11867594 (Version 2)
Quarter: 2016Q1

REPORT INFORMATION
  Report Type: Spontaneous
  Country: US (occurrence: US)
  Receive Date: 20151224
  Receipt Date: 20160322
  Transmission Date: 20160526
  Serious: Yes (Other)
  Sender: FDA-Public Use
  Company Number: US-ELI_LILLY_AND_COMPANY-US201512006313

PATIENT
  Age: 57 Year
  Sex: Female

DRUGS (2)
  1. TRULICITY [Suspect]
     Active Substance: DULAGLUTIDE
     Indication: TYPE 2 DIABETES MELLITUS
     Dosage: 0.75 MG, WEEKLY (1/W)
     Route: 065
     Dates: start: 201505
  2. LEVEMIR [Concomitant]
     Active Substance: INSULIN DETEMIR
     Dosage: UNK, QD
     Route: 065

REACTIONS (20)
  - Mass [Unknown]
  - Loss of consciousness [Unknown]
  - Dyspnoea [Unknown]
  - Hypotension [Unknown]
  - Blood glucose decreased [Unknown]
  - Squamous cell carcinoma [Unknown]
  - Nephrolithiasis [Unknown]
  - Blood pressure fluctuation [Unknown]
  - Blood glucose increased [Unknown]
  - Amnesia [Unknown]
  - Visual impairment [Unknown]
  - Heart rate decreased [Unknown]
  - Dizziness [Unknown]
  - Impaired gastric emptying [Unknown]
  - Nausea [Unknown]
  - Decreased appetite [Unknown]
  - Vascular fragility [Unknown]
  - Abdominal distension [Unknown]
  - Benign neoplasm [Unknown]
  - Fatigue [Unknown]

NARRATIVE: CASE EVENT DATE: 201505
